FAERS Safety Report 4906095-0 (Version None)
Quarter: 2006Q1

REPORT INFORMATION
  Report Type: 
  Country: None (occurrence: None)
  Receive Date: 20060207
  Receipt Date: 20060207
  Transmission Date: 20060701
  Serious: Yes (Life-Threatening, Other)
  Sender: FDA-Public Use
  Company Number: None

PATIENT
  Sex: Female
  Weight: 58.2 kg

DRUGS (2)
  1. NEORAL [Suspect]
     Indication: LIVER TRANSPLANT
     Dosage: PO BID
     Route: 048
     Dates: start: 19910120
  2. NEORAL [Suspect]
     Indication: LIVER TRANSPLANT
     Dosage: PO BID
     Route: 048

REACTIONS (1)
  - NO ADVERSE EFFECT [None]
